FAERS Safety Report 15244884 (Version 1)
Quarter: 2018Q3

REPORT INFORMATION
  Report Type: Spontaneous
  Country: IT (occurrence: IT)
  Receive Date: 20180806
  Receipt Date: 20180806
  Transmission Date: 20181010
  Serious: Yes (Hospitalization, Other)
  Sender: FDA-Public Use
  Company Number: IT-MYLANLABS-2018M1058702

PATIENT
  Age: 50 Year
  Sex: Male
  Weight: 70 kg

DRUGS (4)
  1. CLONAZEPAM. [Suspect]
     Active Substance: CLONAZEPAM
     Indication: MAJOR DEPRESSION
     Dosage: 2 MG, QD
     Route: 048
     Dates: start: 201608
  2. VORTIOXETINE. [Suspect]
     Active Substance: VORTIOXETINE
     Indication: MAJOR DEPRESSION
     Dosage: 10 MG, QD
     Route: 048
     Dates: start: 201608
  3. VORTIOXETINE. [Suspect]
     Active Substance: VORTIOXETINE
     Dosage: 50 TABLETS OF 5MG
     Route: 048
     Dates: start: 20170613
  4. CLONAZEPAM. [Suspect]
     Active Substance: CLONAZEPAM
     Dosage: APPROXIMATELY 10MG
     Route: 048
     Dates: start: 20170613

REACTIONS (3)
  - Intentional overdose [Recovered/Resolved]
  - Hyperkalaemia [Recovered/Resolved]
  - Suicide attempt [Recovered/Resolved]
